FAERS Safety Report 11501584 (Version 1)
Quarter: 2015Q3

REPORT INFORMATION
  Report Type: Spontaneous
  Country: None (occurrence: FR)
  Receive Date: 20150914
  Receipt Date: 20150914
  Transmission Date: 20151125
  Serious: Yes (Other)
  Sender: FDA-Public Use
  Company Number: FR-MERCK KGAA-1041904

PATIENT

DRUGS (1)
  1. NOVOTHYROX [Suspect]
     Active Substance: LEVOTHYROXINE SODIUM

REACTIONS (6)
  - Drug dispensing error [None]
  - Diarrhoea [None]
  - Blood thyroid stimulating hormone decreased [None]
  - Medication error [None]
  - Wrong drug administered [None]
  - Thyroid hormones increased [None]
